FAERS Safety Report 8445161-2 (Version None)
Quarter: 2012Q2

REPORT INFORMATION
  Report Type: 
  Country: None (occurrence: None)
  Receive Date: 20120605
  Receipt Date: 20120530
  Transmission Date: 20120825
  Serious: Yes (Hospitalization)
  Sender: FDA-Public Use
  Company Number: 2012SP010176

PATIENT
  Age: 85 Year
  Sex: Female

DRUGS (11)
  1. SPIRONOLACTONE [Suspect]
     Indication: HYPERTENSION
     Dosage: 1 DF;QD;PO
     Route: 048
     Dates: end: 20120127
  2. POLYETHYLENE GLYCOL [Concomitant]
  3. STALEVO 50 [Suspect]
     Indication: PARKINSON'S DISEASE
     Dosage: PO 5 DF;QD;PO
     Route: 048
     Dates: end: 20111201
  4. STALEVO 50 [Suspect]
     Indication: PARKINSON'S DISEASE
     Dosage: PO 5 DF;QD;PO
     Route: 048
     Dates: start: 20111215, end: 20120126
  5. RABEPRAZOLE SODIUM [Concomitant]
  6. CLOPIDOGREL [Concomitant]
  7. IMOVANE [Concomitant]
  8. LACTULOSE [Concomitant]
  9. OXAZEPAM [Concomitant]
  10. MIRTAZAPINE [Suspect]
     Indication: DEPRESSION
     Dosage: 15 MG;QD;PO
     Route: 048
     Dates: end: 20120127
  11. PRAVASTATIN [Concomitant]

REACTIONS (15)
  - PSYCHOMOTOR RETARDATION [None]
  - COMA SCALE ABNORMAL [None]
  - PSYCHIATRIC SYMPTOM [None]
  - HYPONATRAEMIA [None]
  - GENERAL PHYSICAL HEALTH DETERIORATION [None]
  - MALIGNANT PERITONEAL NEOPLASM [None]
  - ASTHENIA [None]
  - WEIGHT DECREASED [None]
  - FALL [None]
  - DISORIENTATION [None]
  - BLOOD PRESSURE SYSTOLIC INCREASED [None]
  - BLOOD GLUCOSE INCREASED [None]
  - CEREBRAL ATROPHY [None]
  - DECREASED APPETITE [None]
  - MIXED RECEPTIVE-EXPRESSIVE LANGUAGE DISORDER [None]
